FAERS Safety Report 4424763-4 (Version None)
Quarter: 2004Q3

REPORT INFORMATION
  Report Type: 
  Country: None (occurrence: None)
  Receive Date: 20040805
  Receipt Date: 20040721
  Transmission Date: 20050211
  Serious: Yes (Other)
  Sender: FDA-Public Use
  Company Number: 2004-DE-04051GD

PATIENT
  Age: 11 Year

DRUGS (6)
  1. CLONIDINE HCL [Suspect]
     Indication: CARDIOVASCULAR DISORDER
     Dosage: 3 MCG /KG/H
  2. MAGNESIUM SULFATE [Suspect]
     Indication: CARDIOVASCULAR DISORDER
     Dosage: 20-160 MG/KG/H
  3. DOPAMINE HYDROCHLORIDE [Concomitant]
  4. FENTANYL [Concomitant]
  5. MIDAZOLAM HCL [Concomitant]
  6. PANCURONIUM (PANCURONIUM) [Concomitant]

REACTIONS (1)
  - DRUG INEFFECTIVE [None]
